FAERS Safety Report 9423385 (Version 2)
Quarter: 2013Q3

REPORT INFORMATION
  Report Type: Spontaneous
  Country: IT (occurrence: IT)
  Receive Date: 20130726
  Receipt Date: 20130816
  Transmission Date: 20140515
  Serious: Yes (Hospitalization)
  Sender: FDA-Public Use
  Company Number: IT-PFIZER INC-2013216597

PATIENT
  Age: 57 Year
  Sex: Female

DRUGS (1)
  1. XANAX [Suspect]
     Indication: BIPOLAR DISORDER
     Dosage: UNK
     Dates: start: 20130101, end: 20130620

REACTIONS (2)
  - Drug abuse [Recovering/Resolving]
  - Somnolence [Recovering/Resolving]
